FAERS Safety Report 17848356 (Version 2)
Quarter: 2020Q2

REPORT INFORMATION
  Report Type: Spontaneous
  Country: US (occurrence: US)
  Receive Date: 20200602
  Receipt Date: 20200625
  Transmission Date: 20200714
  Serious: Yes (Other)
  Sender: FDA-Public Use
  Company Number: US-HORMOSAN PHARMA GMBH-2020-02462

PATIENT
  Age: 46 Year
  Sex: Female
  Weight: 100 kg

DRUGS (2)
  1. BUSPIRONE [Concomitant]
     Active Substance: BUSPIRONE HYDROCHLORIDE
     Indication: PRODUCT USED FOR UNKNOWN INDICATION
     Dosage: UNK
     Route: 065
  2. DULOXETINE DELAYED-RELEASE DELAYED-RELEASE [Suspect]
     Active Substance: DULOXETINE HYDROCHLORIDE
     Indication: ANXIETY
     Dosage: 60 MILLIGRAM, BID
     Route: 048

REACTIONS (3)
  - Blood iron decreased [Unknown]
  - Platelet count increased [Unknown]
  - Coeliac disease [Not Recovered/Not Resolved]

NARRATIVE: CASE EVENT DATE: 202001
